FAERS Safety Report 5500102-2 (Version None)
Quarter: 2007Q4

REPORT INFORMATION
  Report Type: 
  Country: None (occurrence: None)
  Receive Date: 20071024
  Receipt Date: 20071011
  Transmission Date: 20080405
  Serious: Yes (Hospitalization)
  Sender: FDA-Public Use
  Company Number: 1-14522513

PATIENT
  Age: 6 Week
  Sex: Male
  Weight: 4 kg

DRUGS (7)
  1. AMMONAPS (SODIUM PHENYLBUTYRATE) GRANULES [Suspect]
     Indication: HYPERAMMONAEMIA
     Dosage: 1098 MG DAILY ORALLY
     Route: 048
     Dates: start: 20061018
  2. CARBAGLU (CARGLUMIC ACID) TABLETS [Suspect]
     Indication: ENZYME ABNORMALITY
     Dosage: 150 MG 6 X DAILY ORALLY
     Route: 048
     Dates: start: 20061007, end: 20061124
  3. SODIUM BENZOATE [Concomitant]
  4. ARGININE [Concomitant]
  5. ^NATURAL PROTEIN^ [Concomitant]
  6. ^ESSENTIAL AMINO ACIDS^ [Concomitant]
  7. CITRULLINE [Concomitant]

REACTIONS (5)
  - ANAEMIA [None]
  - OEDEMA [None]
  - PYREXIA [None]
  - RESTRICTIVE CARDIOMYOPATHY [None]
  - WEIGHT INCREASED [None]
